FAERS Safety Report 12388172 (Version 2)
Quarter: 2016Q2

REPORT INFORMATION
  Report Type: Spontaneous
  Country: JP (occurrence: JP)
  Receive Date: 20160520
  Receipt Date: 20160526
  Transmission Date: 20160815
  Serious: Yes (Life-Threatening, Other)
  Sender: FDA-Public Use
  Company Number: JP-ROCHE-1761447

PATIENT
  Age: 81 Year
  Sex: Female
  Weight: 47 kg

DRUGS (2)
  1. XELODA [Suspect]
     Active Substance: CAPECITABINE
     Indication: BREAST CANCER
     Dosage: .
     Route: 048
     Dates: start: 20131104, end: 20160424
  2. TYKERB [Suspect]
     Active Substance: LAPATINIB DITOSYLATE
     Indication: PROPHYLAXIS
     Route: 048
     Dates: start: 20131104

REACTIONS (3)
  - Interstitial lung disease [Recovering/Resolving]
  - Pneumothorax [Not Recovered/Not Resolved]
  - Pneumomediastinum [Unknown]

NARRATIVE: CASE EVENT DATE: 20150107
